FAERS Safety Report 24186079 (Version 2)
Quarter: 2024Q3

REPORT INFORMATION
  Report Type: Report from Study
  Country: IT (occurrence: IT)
  Receive Date: 20240808
  Receipt Date: 20240810
  Transmission Date: 20241017
  Serious: No
  Sender: ABBVIE
  Company Number: IT-ABBVIE-5867525

PATIENT
  Age: 79 Year
  Sex: Female

DRUGS (2)
  1. CARBIDOPA\LEVODOPA [Suspect]
     Active Substance: CARBIDOPA\LEVODOPA
     Indication: Parkinson^s disease
     Dosage: DAILY DOSE (MG/DAY): 1506; PUMP SETTING: MD: 9ML+3ML; CR: 4,1ML/H (15H); ED: 2,4M
     Route: 050
     Dates: start: 202407
  2. CARBIDOPA\LEVODOPA [Suspect]
     Active Substance: CARBIDOPA\LEVODOPA
     Dosage: DAILY DOSE (MG/DAY): 1506; PUMP SETTING: MD: 9ML+3ML; CR: 4,1ML/H (15H); ED: 2,4M
     Route: 050
     Dates: start: 20121002, end: 202407

REACTIONS (2)
  - Off label use [Not Recovered/Not Resolved]
  - Device occlusion [Not Recovered/Not Resolved]

NARRATIVE: CASE EVENT DATE: 20240701
